FAERS Safety Report 11916560 (Version 1)
Quarter: 2016Q1

REPORT INFORMATION
  Report Type: Spontaneous
  Country: US (occurrence: US)
  Receive Date: 20160114
  Receipt Date: 20160114
  Transmission Date: 20160526
  Serious: No
  Sender: FDA-Public Use
  Company Number: US-WATSON-2015-01764

PATIENT
  Age: 68 Year
  Sex: Female

DRUGS (1)
  1. NICOTINE POLACRILEX, COATED MINT FLAVOR [Suspect]
     Active Substance: NICOTINE
     Indication: SMOKING CESSATION THERAPY
     Dosage: 1 DF, EVERY FEW HOURS, PRN
     Route: 065
     Dates: start: 201501

REACTIONS (3)
  - Mouth injury [Not Recovered/Not Resolved]
  - Product taste abnormal [None]
  - Product physical consistency issue [None]

NARRATIVE: CASE EVENT DATE: 201501
